FAERS Safety Report 15974626 (Version 1)
Quarter: 2019Q1

REPORT INFORMATION
  Report Type: Spontaneous
  Country: IT (occurrence: IT)
  Receive Date: 20190218
  Receipt Date: 20190218
  Transmission Date: 20190418
  Serious: Yes (Hospitalization)
  Sender: FDA-Public Use
  Company Number: IT-TEVA-2019-IT-1011550

PATIENT
  Age: 83 Year
  Sex: Female

DRUGS (7)
  1. PIOGLITAZONE. [Concomitant]
     Active Substance: PIOGLITAZONE
  2. NORVASC [Concomitant]
     Active Substance: AMLODIPINE BESYLATE
  3. CLOPIDOGREL [Suspect]
     Active Substance: CLOPIDOGREL BISULFATE
     Indication: MYOCARDIAL ISCHAEMIA
     Dosage: 75 MILLIGRAM DAILY;
     Route: 048
     Dates: start: 20180101, end: 20190128
  4. LASIX [Concomitant]
     Active Substance: FUROSEMIDE
  5. TRIATEC [Concomitant]
  6. MEDROL [Concomitant]
     Active Substance: METHYLPREDNISOLONE
  7. TORVAST [Concomitant]
     Active Substance: ATORVASTATIN

REACTIONS (1)
  - Melaena [Unknown]

NARRATIVE: CASE EVENT DATE: 20190128
